FAERS Safety Report 23161781 (Version 1)
Quarter: 2023Q4

REPORT INFORMATION
  Report Type: Report from Study
  Country: US (occurrence: US)
  Receive Date: 20231108
  Receipt Date: 20231108
  Transmission Date: 20240110
  Serious: Yes (Other)
  Sender: FDA-Public Use
  Company Number: US-JNJFOC-20231107425

PATIENT

DRUGS (2)
  1. SPRAVATO [Suspect]
     Active Substance: ESKETAMINE
     Indication: Depression
  2. ADDERALL [Concomitant]
     Active Substance: AMPHETAMINE ASPARTATE\AMPHETAMINE SULFATE\DEXTROAMPHETAMINE SACCHARATE\DEXTROAMPHETAMINE SULFATE
     Dosage: THE PATIENT HAD CHANGED FROM ADDERALL TO ADDERALL ER (EXTENDED RELEASE) IN THE AM AND 20 MG ADDERALL

REACTIONS (1)
  - Bipolar I disorder [Unknown]

NARRATIVE: CASE EVENT DATE: 20231030
